FAERS Safety Report 17294371 (Version 4)
Quarter: 2020Q4

REPORT INFORMATION
  Report Type: Report from Study
  Country: US (occurrence: US)
  Receive Date: 20200121
  Receipt Date: 20201117
  Transmission Date: 20210113
  Serious: No
  Sender: FDA-Public Use
  Company Number: US-AGIOS-2001US01620

PATIENT

DRUGS (8)
  1. TIBSOVO [Suspect]
     Active Substance: IVOSIDENIB
     Indication: BRAIN NEOPLASM MALIGNANT
     Dosage: 250MG, 2 TABLETS (500MG) DAILY
     Dates: start: 20200125
  2. HYALURONIC ACID [Concomitant]
     Active Substance: HYALURONIC ACID
     Route: 065
  3. PROGESTERONE. [Concomitant]
     Active Substance: PROGESTERONE
     Route: 065
  4. ESTRADIOL. [Concomitant]
     Active Substance: ESTRADIOL
     Route: 065
  5. COMPAZINE                          /00013302/ [Concomitant]
     Active Substance: PROCHLORPERAZINE EDISYLATE
     Route: 065
  6. ACETAMINOPHEN. [Concomitant]
     Active Substance: ACETAMINOPHEN
     Route: 065
  7. PANTOPRAZOLE [Concomitant]
     Active Substance: PANTOPRAZOLE
     Route: 065
  8. SERTRALINE [Concomitant]
     Active Substance: SERTRALINE HYDROCHLORIDE
     Route: 065

REACTIONS (6)
  - Thermal burn [Unknown]
  - Middle ear effusion [Unknown]
  - Arthralgia [Unknown]
  - Myalgia [Recovered/Resolved]
  - Off label use [Unknown]
  - Tinnitus [Unknown]

NARRATIVE: CASE EVENT DATE: 202001
